FAERS Safety Report 8793033 (Version 2)
Quarter: 2012Q4

REPORT INFORMATION
  Report Type: Report from Study
  Country: US (occurrence: US)
  Receive Date: 20120917
  Receipt Date: 20121004
  Transmission Date: 20130627
  Serious: Yes (Hospitalization)
  Sender: FDA-Public Use
  Company Number: US-JNJFOC-20120900923

PATIENT
  Age: 72 Year
  Sex: Female

DRUGS (36)
  1. ACETAMINOPHEN [Suspect]
     Route: 048
  2. ACETAMINOPHEN [Suspect]
     Indication: PAIN
     Route: 048
     Dates: start: 20120822
  3. PERCOCET [Concomitant]
     Indication: PAIN
     Route: 048
     Dates: start: 20120824
  4. NICOTINE PATCH [Concomitant]
     Indication: PRODUCT USED FOR UNKNOWN INDICATION
     Route: 062
  5. FAMOTIDINE [Concomitant]
     Indication: PRODUCT USED FOR UNKNOWN INDICATION
     Route: 048
  6. ALBUTEROL [Concomitant]
     Dosage: 2.5mg/0.5ml
     Route: 065
  7. ALLOPURINOL [Concomitant]
     Route: 048
  8. ASPIRIN [Concomitant]
     Route: 048
  9. BUPROPION [Concomitant]
     Route: 048
  10. COLCRYS [Concomitant]
     Route: 048
  11. FUROSEMIDE [Concomitant]
     Route: 048
  12. ISOSORBIDE [Concomitant]
     Route: 065
  13. LISINOPRIL [Concomitant]
     Route: 065
  14. METOPROLOL [Concomitant]
     Route: 065
  15. NITROSTAT [Concomitant]
     Route: 065
  16. OMEPRAZOLE [Concomitant]
     Route: 065
  17. PLAVIX [Concomitant]
     Route: 065
  18. PRAVASTATIN [Concomitant]
     Route: 065
  19. RANITIDINE [Concomitant]
     Route: 065
  20. SINGULAIR [Concomitant]
     Route: 065
  21. SPIRIVA [Concomitant]
     Route: 065
  22. ULTRACET [Concomitant]
     Route: 065
  23. VENTOLIN [Concomitant]
     Route: 065
  24. AN UNKNOWN MEDICATION [Concomitant]
     Route: 065
  25. AN UNKNOWN MEDICATION [Concomitant]
     Route: 065
  26. DOCUSATE SODIUM [Concomitant]
     Route: 048
  27. FERROUS SULFATE [Concomitant]
     Route: 048
  28. CLOPIDOGREL [Concomitant]
     Route: 048
  29. FLUTICASONE [Concomitant]
     Route: 045
  30. FLUTICASONE AND SALMETEROL [Concomitant]
     Dosage: 500-50 mcg/dose inhalation 1 puff every 12 hours
     Route: 065
  31. MAGNESIUM OXIDE [Concomitant]
     Route: 048
  32. METOPROLOL TARTRATE [Concomitant]
     Route: 048
  33. MONTELUKAST [Concomitant]
     Dosage: 1 tablet daily 2000

same as pre-admission
     Route: 048
  34. NITROSTAT [Concomitant]
     Route: 048
  35. PRAVASTATIN [Concomitant]
     Route: 048
  36. TIOTROPIUM BROMIDE [Concomitant]
     Route: 065

REACTIONS (6)
  - Cardiac failure congestive [Not Recovered/Not Resolved]
  - Asthenia [Not Recovered/Not Resolved]
  - Pallor [Not Recovered/Not Resolved]
  - Chest pain [Not Recovered/Not Resolved]
  - Dyspnoea [Not Recovered/Not Resolved]
  - Haemoglobin decreased [Not Recovered/Not Resolved]
